FAERS Safety Report 18398715 (Version 4)
Quarter: 2020Q4

REPORT INFORMATION
  Report Type: Spontaneous
  Country: US (occurrence: US)
  Receive Date: 20201019
  Receipt Date: 20201125
  Transmission Date: 20210114
  Serious: Yes (Other)
  Sender: FDA-Public Use
  Company Number: US-PFIZER INC-2020399419

PATIENT
  Age: 57 Year
  Sex: Female
  Weight: 75 kg

DRUGS (9)
  1. DOXYCYCLINE HYCLATE. [Suspect]
     Active Substance: DOXYCYCLINE HYCLATE
     Indication: INFECTION
  2. DOXYCYCLINE HYCLATE. [Suspect]
     Active Substance: DOXYCYCLINE HYCLATE
     Indication: ELEPHANTIASIS
  3. DOXYCYCLINE HYCLATE. [Suspect]
     Active Substance: DOXYCYCLINE HYCLATE
     Indication: CHALAZION
  4. DOXYCYCLINE HYCLATE. [Suspect]
     Active Substance: DOXYCYCLINE HYCLATE
     Indication: MEIBOMIANITIS
     Dosage: 100 MG, 1X/DAY
     Dates: start: 20200930, end: 20201013
  5. BUPROPION. [Concomitant]
     Active Substance: BUPROPION
     Indication: DEPRESSION
     Dosage: 300 MG, 1X/DAY
  6. PREDNISOLONE. [Suspect]
     Active Substance: PREDNISOLONE
     Indication: MEIBOMIANITIS
     Dosage: UNK (2 WEEKS TREATMENT)
  7. FAMOTIDINE. [Concomitant]
     Active Substance: FAMOTIDINE
     Indication: GASTROOESOPHAGEAL REFLUX DISEASE
     Dosage: 40 MG, 1X/DAY
  8. CITALOPRAM [Concomitant]
     Active Substance: CITALOPRAM HYDROBROMIDE
     Indication: ANXIETY
     Dosage: 10 MG, 1X/DAY
  9. PREDNISOLONE. [Suspect]
     Active Substance: PREDNISOLONE
     Indication: INFECTION
     Dosage: 1 DF, 2X/DAY
     Dates: start: 20200930, end: 20201013

REACTIONS (4)
  - Halo vision [Recovered/Resolved]
  - Dyschromatopsia [Recovered/Resolved]
  - Vision blurred [Recovering/Resolving]
  - Vitreous detachment [Unknown]

NARRATIVE: CASE EVENT DATE: 2020
